FAERS Safety Report 6390697-1 (Version None)
Quarter: 2009Q4

REPORT INFORMATION
  Report Type: 
  Country: None (occurrence: None)
  Receive Date: 20091006
  Receipt Date: 20091001
  Transmission Date: 20100525
  Serious: Yes (Hospitalization)
  Sender: FDA-Public Use
  Company Number: BE-ABBOTT-09P-013-0581271-00

PATIENT
  Sex: Male

DRUGS (3)
  1. HUMIRA [Suspect]
     Indication: PSORIATIC ARTHROPATHY
     Dates: start: 20080701
  2. DICLOFENAC SODIUM [Concomitant]
     Indication: PSORIATIC ARTHROPATHY
  3. MYOLASTAN [Concomitant]
     Indication: PSORIATIC ARTHROPATHY

REACTIONS (1)
  - TENDON RUPTURE [None]
